FAERS Safety Report 9938267 (Version 2)
Quarter: 2014Q1

REPORT INFORMATION
  Report Type: Report from Study
  Country: US (occurrence: US)
  Receive Date: 20140303
  Receipt Date: 20140303
  Transmission Date: 20141002
  Serious: No
  Sender: FDA-Public Use
  Company Number: US-ABBVIE-12P-163-0953141-00

PATIENT
  Sex: Female
  Weight: 63.56 kg

DRUGS (3)
  1. HUMIRA [Suspect]
     Indication: RHEUMATOID ARTHRITIS
     Route: 058
     Dates: start: 2009, end: 201204
  2. HUMIRA [Suspect]
     Route: 058
     Dates: start: 201205, end: 20121206
  3. HUMIRA [Suspect]
     Route: 058
     Dates: start: 20130109

REACTIONS (2)
  - Condition aggravated [Unknown]
  - Pain [Recovered/Resolved]
